FAERS Safety Report 25649318 (Version 1)
Quarter: 2025Q3

REPORT INFORMATION
  Report Type: Spontaneous
  Country: CA (occurrence: CA)
  Receive Date: 20250806
  Receipt Date: 20250806
  Transmission Date: 20251021
  Serious: Yes (Hospitalization)
  Sender: MERCK SHARP & DOHME LLC
  Company Number: CA-009507513-2314914

PATIENT
  Sex: Female

DRUGS (6)
  1. KEYTRUDA [Suspect]
     Active Substance: PEMBROLIZUMAB
     Indication: Breast cancer
     Route: 042
     Dates: start: 20250130, end: 2025
  2. OLANZAPINE [Concomitant]
     Active Substance: OLANZAPINE
     Route: 065
  3. DEXAMETHASONE [Concomitant]
     Active Substance: DEXAMETHASONE
     Route: 065
  4. Netupitant (+) Palonosetron [Concomitant]
  5. DOXORUBICIN [Concomitant]
     Active Substance: DOXORUBICIN
  6. CYCLOPHOSPHAMIDE [Concomitant]
     Active Substance: CYCLOPHOSPHAMIDE

REACTIONS (4)
  - Pharyngitis [Recovered/Resolved]
  - Incorrect dose administered [Unknown]
  - Febrile neutropenia [Recovered/Resolved]
  - Escherichia urinary tract infection [Recovered/Resolved]

NARRATIVE: CASE EVENT DATE: 20250101
